FAERS Safety Report 24138421 (Version 1)
Quarter: 2024Q3

REPORT INFORMATION
  Report Type: Spontaneous
  Country: US (occurrence: US)
  Receive Date: 20240725
  Receipt Date: 20240725
  Transmission Date: 20241016
  Serious: No
  Sender: PFIZER
  Company Number: US-PFIZER INC-PV202400096021

PATIENT
  Age: 70 Year
  Sex: Male

DRUGS (2)
  1. GEMCITABINE HYDROCHLORIDE [Suspect]
     Active Substance: GEMCITABINE HYDROCHLORIDE
     Dosage: UNK, WEEKLY
     Route: 043
  2. JEVTANA [Suspect]
     Active Substance: CABAZITAXEL
     Route: 043

REACTIONS (2)
  - Fatigue [Unknown]
  - Off label use [Unknown]
